FAERS Safety Report 18354325 (Version 3)
Quarter: 2022Q1

REPORT INFORMATION
  Report Type: Report from Study
  Country: CA (occurrence: CA)
  Receive Date: 20201007
  Receipt Date: 20220126
  Transmission Date: 20220423
  Serious: Yes (Other)
  Sender: FDA-Public Use
  Company Number: CA-ABBVIE-20K-028-3595911-00

PATIENT
  Sex: Male

DRUGS (1)
  1. HUMIRA [Suspect]
     Active Substance: ADALIMUMAB
     Indication: Rheumatoid arthritis
     Route: 058
     Dates: start: 20100225, end: 202007

REACTIONS (4)
  - Systemic lupus erythematosus rash [Not Recovered/Not Resolved]
  - Tinea infection [Unknown]
  - Scab [Not Recovered/Not Resolved]
  - Nasal crusting [Not Recovered/Not Resolved]
